FAERS Safety Report 11824514 (Version 2)
Quarter: 2015Q4

REPORT INFORMATION
  Report Type: Report from Study
  Country: US (occurrence: US)
  Receive Date: 20151210
  Receipt Date: 20151221
  Transmission Date: 20160305
  Serious: Yes (Hospitalization)
  Sender: FDA-Public Use
  Company Number: US-INCYTE CORPORATION-2015IN006398

PATIENT
  Age: 78 Year
  Sex: Male
  Weight: 103.2 kg

DRUGS (6)
  1. INCB018424 (RUXOLITINIB) + DECITABINE [Suspect]
     Active Substance: DECITABINE\RUXOLITINIB
     Dosage: 235 MG EVERY 28 DAYS
     Dates: start: 20150914
  2. INCB018424 (RUXOLITINIB) + DECITABINE [Suspect]
     Active Substance: DECITABINE\RUXOLITINIB
     Dosage: UNK
     Dates: start: 20151116, end: 20151120
  3. SIMVASTATIN. [Concomitant]
     Active Substance: SIMVASTATIN
     Dosage: 20 MG, QD
  4. INCB018424 (RUXOLITINIB) + DECITABINE [Suspect]
     Active Substance: DECITABINE\RUXOLITINIB
     Indication: MYELOPROLIFERATIVE DISORDER
     Dosage: 50 MG, BID
     Route: 048
     Dates: start: 20150907
  5. GLIPIZIDE. [Concomitant]
     Active Substance: GLIPIZIDE
     Dosage: 2.5 MG, QD
  6. LOSARTAN. [Concomitant]
     Active Substance: LOSARTAN
     Dosage: 25 MG, QD

REACTIONS (1)
  - Gastrointestinal haemorrhage [Unknown]

NARRATIVE: CASE EVENT DATE: 20151127
